FAERS Safety Report 12521622 (Version 3)
Quarter: 2016Q3

REPORT INFORMATION
  Report Type: Report from Study
  Country: CN (occurrence: CN)
  Receive Date: 20160701
  Receipt Date: 20160804
  Transmission Date: 20161109
  Serious: Yes (Other)
  Sender: FDA-Public Use
  Company Number: PHHY2016CN087882

PATIENT
  Age: 52 Year
  Sex: Female
  Weight: 59.7 kg

DRUGS (74)
  1. MYFORTIC [Suspect]
     Active Substance: MYCOPHENOLATE SODIUM
     Indication: PROPHYLAXIS AGAINST TRANSPLANT REJECTION
     Dosage: 720 MG, QD
     Route: 048
     Dates: start: 20160530
  2. TARTARIC ACID [Concomitant]
     Active Substance: TARTARIC ACID
     Indication: PRODUCT USED FOR UNKNOWN INDICATION
     Route: 065
  3. DILTIAZEM HYDROCHLORIDE. [Concomitant]
     Active Substance: DILTIAZEM HYDROCHLORIDE
     Dosage: 30 MG, BID
     Route: 048
     Dates: start: 20160607
  4. METOPROLOL TARTRATE. [Concomitant]
     Active Substance: METOPROLOL TARTRATE
     Dosage: 25 MG, QD
     Route: 048
     Dates: start: 20160516, end: 20160601
  5. SIMVASTATIN. [Concomitant]
     Active Substance: SIMVASTATIN
     Indication: LIPIDS INCREASED
     Dosage: 40 MG, QN
     Route: 048
     Dates: start: 20160603, end: 20160617
  6. SIMULECT [Suspect]
     Active Substance: BASILIXIMAB
     Indication: IMMUNOSUPPRESSANT DRUG THERAPY
     Dosage: 20 MG, QD
     Route: 042
     Dates: start: 20160512, end: 20160512
  7. METHYLPREDNISOLONE. [Suspect]
     Active Substance: METHYLPREDNISOLONE
     Indication: PRODUCT USED FOR UNKNOWN INDICATION
     Dosage: 600 MG, QD
     Route: 065
     Dates: start: 20160512, end: 20160512
  8. PREDNISONE. [Suspect]
     Active Substance: PREDNISONE
     Dosage: 10 MG, QD
     Route: 065
     Dates: start: 20160519
  9. ISOSORBIDE MONONITRATE. [Concomitant]
     Active Substance: ISOSORBIDE MONONITRATE
     Indication: BLOOD PRESSURE INCREASED
  10. DILTIAZEM HYDROCHLORIDE. [Concomitant]
     Active Substance: DILTIAZEM HYDROCHLORIDE
     Indication: PRODUCT USED FOR UNKNOWN INDICATION
     Dosage: 30 MG, BID
     Route: 065
     Dates: start: 20160513
  11. AMBROXOL HYDROCHLORIDE [Concomitant]
     Active Substance: AMBROXOL HYDROCHLORIDE
     Dosage: 30 MG, BID
     Route: 055
     Dates: start: 20160603, end: 20160609
  12. BICYCLOL [Concomitant]
     Active Substance: BICYCLOL
     Indication: LIVER DISORDER
     Dosage: 25 MG, TID
     Route: 048
     Dates: start: 20160601, end: 20160614
  13. COMPOUND SULFAMETHOXAZOLE [Concomitant]
     Indication: INFLAMMATION
     Dosage: 1 DF, BID
     Route: 048
     Dates: start: 20160623
  14. FUROSEMIDE. [Concomitant]
     Active Substance: FUROSEMIDE
     Dosage: 20 MG, QD
     Route: 042
     Dates: start: 20160525, end: 20160525
  15. LEVAMLODIPINE BESILATE [Concomitant]
     Active Substance: LEVAMLODIPINE BESYLATE
     Dosage: 2.5 MG, BID
     Route: 048
     Dates: start: 20160524
  16. MAGNESIUM ISOGLYCYRRHIZINATE [Concomitant]
     Active Substance: MAGNESIUM ISOGLYCYRRHIZINATE
     Indication: LIVER DISORDER
     Dosage: 200 MG, QD
     Route: 042
     Dates: start: 20160609, end: 20160616
  17. TACROLIMUS. [Suspect]
     Active Substance: TACROLIMUS
     Indication: PROPHYLAXIS AGAINST TRANSPLANT REJECTION
     Dosage: 2 MG, BID
     Route: 065
     Dates: start: 20160517, end: 20160520
  18. AMOXICILLIN SODIUM [Concomitant]
     Active Substance: AMOXICILLIN SODIUM
     Indication: INFLAMMATION
     Dosage: 1.2 G, BID
     Route: 042
     Dates: start: 20160513, end: 20160520
  19. ASPIRIN. [Concomitant]
     Active Substance: ASPIRIN
     Indication: COAGULOPATHY
     Dosage: 100 MG, QD
     Route: 048
     Dates: start: 20160603
  20. COMPOUND AMINO ACIDS [Concomitant]
     Indication: SUPPLEMENTATION THERAPY
     Dosage: 250 ML, BID
     Route: 042
     Dates: start: 20160513, end: 20160516
  21. FUROSEMIDE. [Concomitant]
     Active Substance: FUROSEMIDE
     Indication: POLYURIA
     Dosage: 2 ML, QH
     Route: 065
     Dates: start: 20160513, end: 20160517
  22. LACTULOSE. [Concomitant]
     Active Substance: LACTULOSE
     Indication: CONSTIPATION
     Dosage: 15 ML, QD
     Route: 048
     Dates: start: 20160519, end: 20160520
  23. LANSOPRAZOLE. [Concomitant]
     Active Substance: LANSOPRAZOLE
     Indication: GASTRIC DISORDER
     Dosage: 30 MG, BID
     Route: 048
     Dates: start: 20160518
  24. METOPROLOL TARTRATE. [Concomitant]
     Active Substance: METOPROLOL TARTRATE
     Indication: BLOOD PRESSURE INCREASED
     Dosage: 6.25 MG, BID
     Route: 048
     Dates: start: 20160513, end: 20160519
  25. PROTAMINE SULFATE. [Concomitant]
     Active Substance: PROTAMINE SULFATE
     Indication: COAGULOPATHY
     Dosage: 50 MG, QD
     Route: 042
     Dates: start: 20160512, end: 20160512
  26. REDUCED GLUTATHIONE [Concomitant]
     Dosage: 1.8 G, QD
     Route: 042
     Dates: start: 20160520, end: 20160617
  27. SALMON CALCITONIN [Concomitant]
     Indication: MINERAL SUPPLEMENTATION
     Dosage: 50 IU, QD
     Route: 042
     Dates: start: 20160603, end: 20160609
  28. SILYMARIN [Concomitant]
     Active Substance: MILK THISTLE
     Indication: LIVER DISORDER
     Dosage: 70 MG, TID
     Route: 048
     Dates: start: 20160601, end: 20160619
  29. SIMULECT [Suspect]
     Active Substance: BASILIXIMAB
     Dosage: 20 MG, QD
     Route: 042
     Dates: start: 20160516, end: 20160516
  30. PREDNISONE. [Suspect]
     Active Substance: PREDNISONE
     Dosage: 20 MG, QD
     Route: 065
     Dates: start: 20160519, end: 20160519
  31. ISOSORBIDE MONONITRATE. [Concomitant]
     Active Substance: ISOSORBIDE MONONITRATE
     Indication: PRODUCT USED FOR UNKNOWN INDICATION
     Dosage: 30 MG, QD
     Route: 048
     Dates: start: 20160513, end: 20160601
  32. DOPAMINE [Concomitant]
     Active Substance: DOPAMINE\DOPAMINE HYDROCHLORIDE
     Indication: CAPILLARY DISORDER
     Dosage: 6 MG, 6 ML/HR
     Route: 065
     Dates: start: 20160513, end: 20160518
  33. FUROSEMIDE. [Concomitant]
     Active Substance: FUROSEMIDE
     Dosage: 20 MG, QD
     Route: 042
     Dates: start: 20160520, end: 20160520
  34. FUROSEMIDE. [Concomitant]
     Active Substance: FUROSEMIDE
     Indication: POLYURIA
     Dosage: 40 MG, QD
     Route: 048
     Dates: start: 20160524, end: 20160524
  35. HEPATITIS B HUMAN IMMUNOGLOBULIN [Concomitant]
     Indication: HEPATITIS B
     Dosage: 100 IU, QD
     Route: 030
     Dates: start: 20160512, end: 20160512
  36. MANNITOL. [Concomitant]
     Active Substance: MANNITOL
     Indication: OEDEMA
     Dosage: 125 ML, QD
     Route: 042
     Dates: start: 20160512, end: 20160512
  37. POTASSIUM CHLORIDE. [Concomitant]
     Active Substance: POTASSIUM CHLORIDE
     Indication: MINERAL SUPPLEMENTATION
     Dosage: 3 G, QD
     Route: 042
     Dates: start: 20160513, end: 20160515
  38. POTASSIUM CHLORIDE. [Concomitant]
     Active Substance: POTASSIUM CHLORIDE
     Indication: MINERAL SUPPLEMENTATION
     Dosage: 3 G, QD
     Route: 048
     Dates: start: 20160520, end: 20160520
  39. PREDNISONE. [Suspect]
     Active Substance: PREDNISONE
     Dosage: 60 MG, QD
     Route: 065
     Dates: start: 20160517, end: 20160517
  40. TACROLIMUS. [Suspect]
     Active Substance: TACROLIMUS
     Dosage: 1 MG, BID
     Route: 065
     Dates: start: 20160603, end: 20160607
  41. TACROLIMUS. [Suspect]
     Active Substance: TACROLIMUS
     Dosage: 3 MG, BID
     Route: 065
     Dates: start: 20160607, end: 20160610
  42. ZYBAN [Concomitant]
     Active Substance: BUPROPION HYDROCHLORIDE
     Indication: PRODUCT USED FOR UNKNOWN INDICATION
     Dosage: 30 MG, QD
     Route: 065
  43. FUROSEMIDE. [Concomitant]
     Active Substance: FUROSEMIDE
     Dosage: 20 MG, QD
     Route: 042
     Dates: start: 20160528, end: 20160528
  44. LEVAMLODIPINE BESILATE [Concomitant]
     Active Substance: LEVAMLODIPINE BESYLATE
     Indication: BLOOD PRESSURE INCREASED
     Dosage: 2.5 MG, QD
     Route: 048
     Dates: start: 20160516, end: 20160524
  45. LOSARTAN POTASSIUM. [Concomitant]
     Active Substance: LOSARTAN POTASSIUM
     Indication: BLOOD PRESSURE INCREASED
     Dosage: 0.1 G, BID
     Route: 048
     Dates: start: 20160626
  46. MYFORTIC [Suspect]
     Active Substance: MYCOPHENOLATE SODIUM
     Indication: RENAL TRANSPLANT
     Dosage: 1440 MG, QD
     Route: 048
     Dates: start: 20160512, end: 20160530
  47. METHYLPREDNISOLONE. [Suspect]
     Active Substance: METHYLPREDNISOLONE
     Dosage: 500 MG, QD
     Route: 065
     Dates: start: 20160513, end: 20160515
  48. PREDNISONE. [Suspect]
     Active Substance: PREDNISONE
     Indication: PROPHYLAXIS AGAINST TRANSPLANT REJECTION
     Dosage: 80 MG, QD
     Route: 065
     Dates: start: 20160516, end: 20160516
  49. PREDNISONE. [Suspect]
     Active Substance: PREDNISONE
     Dosage: 40 MG, QD
     Route: 065
     Dates: start: 20160518, end: 20160518
  50. TACROLIMUS. [Suspect]
     Active Substance: TACROLIMUS
     Dosage: 1 MG, BID
     Route: 065
     Dates: start: 20160618
  51. DILTIAZEM HYDROCHLORIDE. [Concomitant]
     Active Substance: DILTIAZEM HYDROCHLORIDE
     Indication: BLOOD PRESSURE INCREASED
     Dosage: 30 MG, BID
     Route: 048
     Dates: start: 20160517, end: 20160530
  52. AMBROXOL HYDROCHLORIDE [Concomitant]
     Active Substance: AMBROXOL HYDROCHLORIDE
     Indication: PROPHYLAXIS
     Dosage: 30 MG, BID
     Route: 055
     Dates: start: 20160513, end: 20160518
  53. FENOFIBRATE. [Concomitant]
     Active Substance: FENOFIBRATE
     Indication: LIPIDS INCREASED
     Dosage: 0.2 G, QD
     Route: 048
     Dates: start: 20160603, end: 20160617
  54. GANCICLOVIR. [Concomitant]
     Active Substance: GANCICLOVIR
     Indication: PROPHYLAXIS
     Dosage: 300 MG, BID
     Route: 042
     Dates: start: 20160524, end: 20160530
  55. VITAMIN B6 [Concomitant]
     Active Substance: PYRIDOXINE HYDROCHLORIDE
     Indication: SUPPLEMENTATION THERAPY
     Dosage: 200 MG, QD
     Route: 042
     Dates: start: 20160513, end: 20160516
  56. TACROLIMUS. [Suspect]
     Active Substance: TACROLIMUS
     Dosage: 3 MG, BID
     Route: 065
     Dates: start: 20160610, end: 20160618
  57. GLUTATHIONE [Concomitant]
     Active Substance: GLUTATHIONE
     Indication: PROPHYLAXIS
     Dosage: 1.8 G, QD
     Route: 042
     Dates: start: 20160513, end: 20160518
  58. ISOSORBIDE MONONITRATE. [Concomitant]
     Active Substance: ISOSORBIDE MONONITRATE
     Indication: CAPILLARY DISORDER
     Dosage: 30 MG, QD
     Route: 048
     Dates: start: 20160601
  59. AMBROXOL HYDROCHLORIDE [Concomitant]
     Active Substance: AMBROXOL HYDROCHLORIDE
     Dosage: 30 MG, BID
     Route: 042
     Dates: start: 20160513, end: 20160520
  60. FUROSEMIDE. [Concomitant]
     Active Substance: FUROSEMIDE
     Dosage: 20 MG, QD
     Route: 042
     Dates: start: 20160522, end: 20160522
  61. HUMAN BLOOD ALBUMIN [Concomitant]
     Indication: SUPPLEMENTATION THERAPY
     Dosage: 12.5 G, QD
     Route: 042
     Dates: start: 20160512, end: 20160513
  62. HUMAN BLOOD ALBUMIN [Concomitant]
     Dosage: 10 G, QD
     Route: 042
     Dates: start: 20160513, end: 20160520
  63. METOPROLOL TARTRATE. [Concomitant]
     Active Substance: METOPROLOL TARTRATE
     Dosage: 25 MG, QD
     Route: 048
     Dates: start: 20160601
  64. OMEPRAZOLE SODIUM [Concomitant]
     Active Substance: OMEPRAZOLE SODIUM
     Indication: GASTRIC DISORDER
     Dosage: 40 MG, BID
     Route: 042
     Dates: start: 20160512, end: 20160518
  65. VITAMIN C [Concomitant]
     Active Substance: ASCORBIC ACID
     Indication: SUPPLEMENTATION THERAPY
     Dosage: 2 G, QD
     Route: 042
     Dates: start: 20160513, end: 20160516
  66. METOPROLOL. [Concomitant]
     Active Substance: METOPROLOL
     Indication: PRODUCT USED FOR UNKNOWN INDICATION
     Dosage: 25 MG, BID
     Route: 065
  67. AMLODIPINE [Concomitant]
     Active Substance: AMLODIPINE BESYLATE
     Indication: PRODUCT USED FOR UNKNOWN INDICATION
     Dosage: 2.5 MG, BID
     Route: 065
  68. AMOXICILLIN AND CLAVULANATE POTASSIUM [Concomitant]
     Active Substance: AMOXICILLIN\CLAVULANATE POTASSIUM
     Indication: INFLAMMATION
     Dosage: 1.2 G, BID
     Route: 042
     Dates: start: 20160512, end: 20160520
  69. GANCICLOVIR. [Concomitant]
     Active Substance: GANCICLOVIR
     Dosage: 300 MG, BID
     Route: 042
     Dates: start: 20160609, end: 20160623
  70. INSULIN [Concomitant]
     Active Substance: INSULIN NOS
     Indication: INFUSION
     Dosage: 6 IU, QD
     Route: 042
     Dates: start: 20160514, end: 20160514
  71. REDUCED GLUTATHIONE [Concomitant]
     Indication: LIVER DISORDER
     Dosage: 1.8 G, QD
     Route: 042
     Dates: start: 20160513, end: 20160518
  72. SODIUM BICARBONATE. [Concomitant]
     Active Substance: SODIUM BICARBONATE
     Indication: BLOOD URIC ACID ABNORMAL
     Dosage: 1 G, TID
     Route: 048
     Dates: start: 20160623
  73. SPIRONOLACTONE. [Concomitant]
     Active Substance: SPIRONOLACTONE
     Indication: SWELLING
     Dosage: 20 MG, QD
     Route: 048
     Dates: start: 20160527, end: 20160530
  74. SPIRONOLACTONE. [Concomitant]
     Active Substance: SPIRONOLACTONE
     Indication: POLYURIA
     Dosage: 20 MG, QD
     Route: 048
     Dates: start: 20160603, end: 20160609

REACTIONS (12)
  - C-reactive protein increased [Unknown]
  - Lymphocyte count decreased [Unknown]
  - Blood urine present [Unknown]
  - Alanine aminotransferase increased [Recovering/Resolving]
  - White blood cell count increased [Unknown]
  - Blood urea increased [Unknown]
  - Neutrophil count increased [Unknown]
  - Aspartate aminotransferase increased [Recovering/Resolving]
  - Blood glucose increased [Unknown]
  - Haemoglobin decreased [Unknown]
  - Protein urine present [Unknown]
  - Incision site pain [Recovering/Resolving]

NARRATIVE: CASE EVENT DATE: 20160513
